FAERS Safety Report 4401194-4 (Version None)
Quarter: 2004Q3

REPORT INFORMATION
  Report Type: 
  Country: None (occurrence: None)
  Receive Date: 20040907
  Receipt Date: 20031215
  Transmission Date: 20050211
  Serious: No
  Sender: FDA-Public Use
  Company Number: US-BRISTOL-MYERS SQUIBB COMPANY-12458014

PATIENT
  Age: 73 Year
  Sex: Female
  Weight: 65 kg

DRUGS (3)
  1. COUMADIN [Suspect]
     Indication: ATRIAL FIBRILLATION
     Dosage: 2.5 MG ON SUNDAY AND WEDNESDAY AND 5 MG ON MONDAY, TUESDAY, THURSDAY, FRIDAY, AND SATURDAY.
     Route: 048
  2. PACERONE [Concomitant]
  3. ZYRTEC [Concomitant]

REACTIONS (1)
  - MELAENA [None]
